FAERS Safety Report 23472922 (Version 1)
Quarter: 2024Q1

REPORT INFORMATION
  Report Type: Report from Study
  Country: US (occurrence: US)
  Receive Date: 20240203
  Receipt Date: 20240203
  Transmission Date: 20240410
  Serious: Yes (Other)
  Sender: FDA-Public Use
  Company Number: US-ABBVIE-5488175

PATIENT
  Sex: Female

DRUGS (2)
  1. VENCLEXTA [Suspect]
     Active Substance: VENETOCLAX
     Indication: B-cell small lymphocytic lymphoma
     Dosage: TAKE 4 TABLET(S) BY MOUTH ONCE DAILY WITH FOOD AND FULL GLASS OF WATER?FORM STRENGTH: 100 MG?LOWE...
     Route: 048
  2. VENCLEXTA [Suspect]
     Active Substance: VENETOCLAX
     Indication: B-cell small lymphocytic lymphoma
     Dosage: TAKE 4 TABLET(S) BY MOUTH ONCE DAILY WITH FOOD AND FULL GLASS OF WATER?FORM STRENGTH: 100 MG
     Route: 048

REACTIONS (10)
  - Ankle operation [Unknown]
  - Insomnia [Unknown]
  - Diarrhoea [Unknown]
  - Foot operation [Unknown]
  - Fungal skin infection [Unknown]
  - Vomiting [Unknown]
  - Nausea [Unknown]
  - Aphonia [Unknown]
  - Headache [Unknown]
  - Hypoaesthesia [Unknown]
